APPROVED DRUG PRODUCT: RANOLAZINE
Active Ingredient: RANOLAZINE
Strength: 500MG
Dosage Form/Route: TABLET, EXTENDED RELEASE;ORAL
Application: A211361 | Product #001 | TE Code: AB
Applicant: JUBILANT GENERICS LTD
Approved: Apr 15, 2025 | RLD: No | RS: No | Type: RX